FAERS Safety Report 11122871 (Version 3)
Quarter: 2016Q4

REPORT INFORMATION
  Report Type: Spontaneous
  Country: US (occurrence: US)
  Receive Date: 20150519
  Receipt Date: 20161223
  Transmission Date: 20170206
  Serious: No
  Sender: FDA-Public Use
  Company Number: US-PFIZER INC-2015167367

PATIENT
  Age: 57 Year
  Sex: Female

DRUGS (1)
  1. ESTRING [Suspect]
     Active Substance: ESTRADIOL
     Dosage: UNK UNK, EVERY 3 MONTHS
     Dates: start: 2013

REACTIONS (1)
  - Vulvovaginal mycotic infection [Not Recovered/Not Resolved]
